FAERS Safety Report 5818015-5 (Version None)
Quarter: 2008Q3

REPORT INFORMATION
  Report Type: 
  Country: None (occurrence: None)
  Receive Date: 20080722
  Receipt Date: 20071206
  Transmission Date: 20090109
  Serious: No
  Sender: FDA-Public Use
  Company Number: US-BOEHRINGER INGELHEIM GMBH, GERMANY-2007-BP-04559BP

PATIENT
  Sex: Male
  Weight: 97 kg

DRUGS (1)
  1. MIRAPEX [Suspect]
     Indication: PARKINSON'S DISEASE
     Dosage: 0.25 MG THREE TIMES A DAY UP TO 1.5 MG THREE TIMES A DAY
     Dates: start: 19970917, end: 20031001

REACTIONS (9)
  - BINGE EATING [None]
  - DELUSION [None]
  - HYPERPHAGIA [None]
  - HYPERSEXUALITY [None]
  - MAJOR DEPRESSION [None]
  - OBSESSIVE-COMPULSIVE DISORDER [None]
  - PATHOLOGICAL GAMBLING [None]
  - SUICIDAL IDEATION [None]
  - WEIGHT INCREASED [None]
